FAERS Safety Report 22611772 (Version 1)
Quarter: 2023Q2

REPORT INFORMATION
  Report Type: Spontaneous
  Country: FR (occurrence: FR)
  Receive Date: 20230616
  Receipt Date: 20230616
  Transmission Date: 20230721
  Serious: Yes (Hospitalization)
  Sender: FDA-Public Use
  Company Number: None

PATIENT
  Age: 76 Year
  Sex: Female

DRUGS (1)
  1. KEYTRUDA [Suspect]
     Active Substance: PEMBROLIZUMAB
     Indication: Breast cancer metastatic
     Dosage: 1 DOSAGE FORM, Q3W
     Route: 042
     Dates: start: 20230324, end: 20230505

REACTIONS (2)
  - Extremity necrosis [Recovering/Resolving]
  - Raynaud^s phenomenon [Recovering/Resolving]

NARRATIVE: CASE EVENT DATE: 20230401
